FAERS Safety Report 24339660 (Version 1)
Quarter: 2024Q3

REPORT INFORMATION
  Report Type: Spontaneous
  Country: US (occurrence: US)
  Receive Date: 20240919
  Receipt Date: 20240919
  Transmission Date: 20241016
  Serious: Yes (Hospitalization)
  Sender: BRISTOL MYERS SQUIBB
  Company Number: US-BRISTOL-MYERS SQUIBB COMPANY-2024-147941

PATIENT
  Age: 84 Year
  Sex: Male

DRUGS (1)
  1. ABRAXANE [Suspect]
     Active Substance: PACLITAXEL
     Indication: Adenocarcinoma pancreas
     Dosage: FREQ : 147 MG DAY 1 AND 15 AND THEN EVERY 4 WEEKS
     Dates: end: 20240813

REACTIONS (2)
  - Hospitalisation [Unknown]
  - Off label use [Unknown]
